FAERS Safety Report 13981002 (Version 1)
Quarter: 2017Q3

REPORT INFORMATION
  Report Type: Spontaneous
  Country: US (occurrence: US)
  Receive Date: 20170918
  Receipt Date: 20170918
  Transmission Date: 20171128
  Serious: No
  Sender: FDA-Public Use
  Company Number: US-B.I. PHARMACEUTICALS,INC./RIDGEFIELD-2017-BI-049440

PATIENT
  Sex: Female

DRUGS (13)
  1. COMBIVENT [Suspect]
     Active Substance: ALBUTEROL SULFATE\IPRATROPIUM BROMIDE
     Dosage: FORM STRENGTH: 20 MCG / 100 MCG;
     Route: 055
     Dates: start: 2016, end: 2016
  2. LEVALBUTEROL TAR HFA [Concomitant]
     Indication: ASTHMA
     Dosage: TWO PUFFS BY MOUTH EVERY FOUR HOURS AS NEEDED;  FORM STRENGTH: 45 MCG
     Route: 048
  3. TRAZODONE [Concomitant]
     Active Substance: TRAZODONE HYDROCHLORIDE
     Indication: DEPRESSION
  4. PROAIR HFA [Concomitant]
     Active Substance: ALBUTEROL SULFATE
     Indication: ASTHMA
     Dosage: TWO PUFFS BY  MOUTH FOUR TIMES A DAY;  FORM STRENGTH: 90 MCG
     Route: 048
  5. LATANOPROST. [Concomitant]
     Active Substance: LATANOPROST
     Indication: GLAUCOMA
     Dosage: ONE DROP TO EACH EYE EVERY EVENING;
     Route: 065
  6. CLONZEPAME [Concomitant]
     Indication: DEPRESSION
     Dosage: ONE TABLET THREE TIMES A DAY;  FORM STRENGTH: 1 MG; FORMULATION: TABLET
     Route: 048
  7. COMBIVENT [Suspect]
     Active Substance: ALBUTEROL SULFATE\IPRATROPIUM BROMIDE
     Indication: CHRONIC OBSTRUCTIVE PULMONARY DISEASE
     Dosage: TWO PUFFS EVERY FOUR HOURS;  FORM STRENGTH: 20 MCG / 100 MCG; FORMULATION: INHALATION SPRAY    ADMIN
     Route: 055
     Dates: start: 2016
  8. COMBIVENT [Suspect]
     Active Substance: ALBUTEROL SULFATE\IPRATROPIUM BROMIDE
     Dosage: FORM STRENGTH: 20 MCG / 100 MCG;
     Route: 055
     Dates: start: 2016, end: 2016
  9. LUCTULOSE LAXATIVE [Concomitant]
     Indication: CONSTIPATION
     Dosage: TAKE THREE TABLESPOON TWO TIMES A DAY;  FORM STRENGTH: 10 GM/15 ML; FORMULATION: ORAL SOLUTION
     Route: 048
  10. MONTELUKAST SOD [Concomitant]
     Active Substance: MONTELUKAST SODIUM
     Indication: ASTHMA
     Dosage: ONE TABLET BY MOUTH DAILY;  FORM STRENGTH: 10 MG; FORMULATION: TABLET
     Route: 048
  11. TRAZODONE [Concomitant]
     Active Substance: TRAZODONE HYDROCHLORIDE
     Indication: ANXIETY
     Dosage: THREE BY MOUTH ONCE A DAY;  FORM STRENGTH: 50 MG; FORMULATION: TABLET
     Route: 048
  12. TRIAMTERENE AND HYDROCHLOROTHIAZIDE [Concomitant]
     Active Substance: HYDROCHLOROTHIAZIDE\TRIAMTERENE
     Indication: HYPERTENSION
     Dosage: TWO TABLETS ONCE A DAY;  FORM STRENGTH: 37.5MG/25  MG; FORMULATION: TABLET
     Route: 048
  13. VENLAFAXINE HCL [Concomitant]
     Active Substance: VENLAFAXINE HYDROCHLORIDE
     Indication: FIBROMYALGIA
     Dosage: ONE TABLET DAILY;  FORM STRENGTH: 75 MG; FORMULATION: TABLET
     Route: 048

REACTIONS (3)
  - Fatigue [Not Recovered/Not Resolved]
  - Dyspnoea [Not Recovered/Not Resolved]
  - Medication error [Recovered/Resolved]

NARRATIVE: CASE EVENT DATE: 2016
